FAERS Safety Report 24097153 (Version 2)
Quarter: 2025Q2

REPORT INFORMATION
  Report Type: Spontaneous
  Country: US (occurrence: US)
  Receive Date: 20240716
  Receipt Date: 20250429
  Transmission Date: 20250717
  Serious: Yes (Other)
  Sender: PFIZER
  Company Number: US-PFIZER INC-PV202400092457

PATIENT
  Age: 66 Year
  Sex: Female

DRUGS (1)
  1. TUKYSA [Suspect]
     Active Substance: TUCATINIB
     Dosage: 300 MG, 2X/DAY

REACTIONS (3)
  - Malignant neoplasm progression [Unknown]
  - Oropharyngeal pain [Unknown]
  - Dysphonia [Unknown]
